FAERS Safety Report 25008718 (Version 1)
Quarter: 2025Q1

REPORT INFORMATION
  Report Type: Spontaneous
  Country: HU (occurrence: HU)
  Receive Date: 20250225
  Receipt Date: 20250225
  Transmission Date: 20250409
  Serious: Yes (Hospitalization, Other)
  Sender: DUCHESNAY
  Company Number: HU-EXELTIS PHARMACEUTICAL HOLDING, S.L.-2502HU01208

PATIENT

DRUGS (2)
  1. DOXYLAMINE SUCCINATE AND PYRIDOXINE HYDROCHLORIDE [Suspect]
     Active Substance: DOXYLAMINE SUCCINATE\PYRIDOXINE HYDROCHLORIDE
     Indication: Morning sickness
     Dosage: 1 PILL DAILY BEFORE GOING TO BED
     Route: 048
  2. DOXYLAMINE SUCCINATE AND PYRIDOXINE HYDROCHLORIDE [Suspect]
     Active Substance: DOXYLAMINE SUCCINATE\PYRIDOXINE HYDROCHLORIDE
     Dates: end: 202501

REACTIONS (9)
  - Drug dependence [Not Recovered/Not Resolved]
  - Vomiting [Not Recovered/Not Resolved]
  - Migraine [Not Recovered/Not Resolved]
  - Quality of life decreased [Not Recovered/Not Resolved]
  - Abdominal pain upper [Not Recovered/Not Resolved]
  - Maternal condition affecting foetus [Not Recovered/Not Resolved]
  - Weight decreased [Not Recovered/Not Resolved]
  - Feeling abnormal [Not Recovered/Not Resolved]
  - Nausea [Not Recovered/Not Resolved]

NARRATIVE: CASE EVENT DATE: 20250101
